FAERS Safety Report 4714403-9 (Version None)
Quarter: 2005Q3

REPORT INFORMATION
  Report Type: 
  Country: None (occurrence: None)
  Receive Date: 20050714
  Receipt Date: 20050706
  Transmission Date: 20060218
  Serious: Yes (Hospitalization)
  Sender: FDA-Public Use
  Company Number: SE-GLAXOSMITHKLINE-B0387321A

PATIENT
  Age: 40 Year
  Sex: Female

DRUGS (16)
  1. VALTREX [Suspect]
     Indication: PROPHYLAXIS
     Dosage: 300MG PER DAY
     Route: 048
     Dates: start: 19981121, end: 19981126
  2. METOPROLOL SUCCINATE [Concomitant]
  3. CYKLOKAPRON [Concomitant]
  4. ORALOVITE [Concomitant]
  5. PROVERA [Concomitant]
  6. DIGOXIN [Concomitant]
  7. NATRIUM BICARBONATE [Concomitant]
  8. FUROSEMIDE [Concomitant]
  9. PRIMAXIN [Concomitant]
     Dates: start: 19981101
  10. CIPROXIN [Concomitant]
  11. DIFLUCAN [Concomitant]
  12. AMIMOX [Concomitant]
  13. KALCIPOS [Concomitant]
  14. DIVIGEL [Concomitant]
  15. LOSEC [Concomitant]
  16. CHEMOTHERAPY [Concomitant]

REACTIONS (10)
  - ASPERGILLOSIS [None]
  - BLOOD BICARBONATE INCREASED [None]
  - CONFUSIONAL STATE [None]
  - COORDINATION ABNORMAL [None]
  - HALLUCINATION [None]
  - HYPOCHLORAEMIA [None]
  - HYPOKALAEMIA [None]
  - HYPONATRAEMIA [None]
  - LETHARGY [None]
  - MUSCLE SPASMS [None]
